FAERS Safety Report 6904477-9 (Version None)
Quarter: 2010Q3

REPORT INFORMATION
  Report Type: 
  Country: None (occurrence: None)
  Receive Date: 20100804
  Receipt Date: 20090601
  Transmission Date: 20110219
  Serious: No
  Sender: FDA-Public Use
  Company Number: US-PFIZER INC-2009172191

PATIENT
  Sex: Female
  Weight: 68.9 kg

DRUGS (4)
  1. LYRICA [Suspect]
     Indication: FIBROMYALGIA
     Dosage: 50 MG, 2X/DAY
     Dates: start: 20081204, end: 20081212
  2. NAPROXEN [Concomitant]
     Dosage: UNK
  3. VICODIN [Concomitant]
     Dosage: UNK
  4. NORTRIPTYLINE [Concomitant]
     Dosage: UNK

REACTIONS (8)
  - ASTHENIA [None]
  - COORDINATION ABNORMAL [None]
  - DISORIENTATION [None]
  - FEELING ABNORMAL [None]
  - HYPOAESTHESIA [None]
  - SENSATION OF HEAVINESS [None]
  - SOMNOLENCE [None]
  - THINKING ABNORMAL [None]
